FAERS Safety Report 8587137-0 (Version None)
Quarter: 2012Q3

REPORT INFORMATION
  Report Type: 
  Country: None (occurrence: None)
  Receive Date: 20120810
  Receipt Date: 20120731
  Transmission Date: 20120928
  Serious: No
  Sender: FDA-Public Use
  Company Number: US-ASTRAZENECA-2012SE51806

PATIENT
  Age: 71 Year
  Sex: Male

DRUGS (2)
  1. ZOMIG [Suspect]
     Route: 048
  2. NEXIUM [Suspect]
     Route: 048

REACTIONS (5)
  - DRUG DOSE OMISSION [None]
  - CLUSTER HEADACHE [None]
  - TOOTHACHE [None]
  - HEADACHE [None]
  - MALAISE [None]
